FAERS Safety Report 23711363 (Version 2)
Quarter: 2024Q2

REPORT INFORMATION
  Report Type: Other
  Country: CN (occurrence: CN)
  Receive Date: 20240405
  Receipt Date: 20240409
  Transmission Date: 20240715
  Serious: Yes (Death)
  Sender: FDA-Public Use
  Company Number: CN-002147023-NVSC2024CN071423

PATIENT
  Age: 60 Year
  Sex: Female

DRUGS (2)
  1. LUCENTIS [Suspect]
     Active Substance: RANIBIZUMAB
     Indication: Diabetic retinal oedema
     Dosage: 1 DOSAGE FORM (ON DEMAND)
     Route: 047
     Dates: start: 202212, end: 202307
  2. LUCENTIS [Suspect]
     Active Substance: RANIBIZUMAB
     Dosage: THIRD INJECTION
     Route: 047

REACTIONS (1)
  - Death [Fatal]
